FAERS Safety Report 26195716 (Version 1)
Quarter: 2025Q4

REPORT INFORMATION
  Report Type: Spontaneous
  Country: JP (occurrence: JP)
  Receive Date: 20251224
  Receipt Date: 20251224
  Transmission Date: 20260118
  Serious: Yes (Hospitalization, Other)
  Sender: ABBVIE
  Company Number: JP-LUNDBECK-DKLU4023249

PATIENT
  Weight: 3.25 kg

DRUGS (1)
  1. LEXAPRO [Suspect]
     Active Substance: ESCITALOPRAM OXALATE
     Indication: Maternal exposure timing unspecified
     Dosage: 10 MILLIGRAM
     Route: 064

REACTIONS (3)
  - Tachycardia foetal [Recovered/Resolved]
  - Electrocardiogram QT prolonged [Recovered/Resolved]
  - Foetal exposure during pregnancy [Unknown]
